FAERS Safety Report 7961559-0 (Version None)
Quarter: 2011Q4

REPORT INFORMATION
  Report Type: 
  Country: None (occurrence: None)
  Receive Date: 20111207
  Receipt Date: 20111203
  Transmission Date: 20120403
  Serious: Yes (Death, Hospitalization, Other)
  Sender: FDA-Public Use
  Company Number: PHHY2011AU103076

PATIENT
  Sex: Female

DRUGS (6)
  1. PRAVACHOL [Concomitant]
     Dosage: UNK UKN, UNK
     Route: 048
  2. LASIX [Concomitant]
     Dosage: UNK UKN, UNK
     Route: 048
  3. ZOLEDRONOC ACID [Suspect]
     Dosage: 5 MG, YEARLY
     Route: 042
     Dates: start: 20100204
  4. MINAX [Concomitant]
     Dosage: UNK UKN, UNK
     Route: 048
  5. PERINDOPRIL ERBUMINE [Concomitant]
     Dosage: UNK UKN, UNK
     Route: 048
  6. ANTIARRYTHMICS [Concomitant]
     Dosage: UNK UKN, UNK

REACTIONS (2)
  - CEREBROVASCULAR ACCIDENT [None]
  - LOSS OF CONSCIOUSNESS [None]
